FAERS Safety Report 5806726-7 (Version None)
Quarter: 2008Q3

REPORT INFORMATION
  Report Type: 
  Country: None (occurrence: None)
  Receive Date: 20080709
  Receipt Date: 20080709
  Transmission Date: 20090109
  Serious: Yes (Life-Threatening, Other)
  Sender: FDA-Public Use
  Company Number: None

PATIENT
  Age: 36 Year
  Weight: 99.7913 kg

DRUGS (1)
  1. CYMBALTA [Suspect]
     Indication: GENERALISED ANXIETY DISORDER
     Dosage: 30MG ONCE PER DAY PO
     Route: 048
     Dates: start: 20080410, end: 20080703

REACTIONS (8)
  - ALCOHOL WITHDRAWAL SYNDROME [None]
  - CRYING [None]
  - DIZZINESS [None]
  - HALLUCINATIONS, MIXED [None]
  - HEADACHE [None]
  - MOOD SWINGS [None]
  - SUICIDAL IDEATION [None]
  - SUICIDE ATTEMPT [None]
